FAERS Safety Report 8515857 (Version 2)
Quarter: 2013Q2

REPORT INFORMATION
  Report Type: Report from Study
  Country: GB (occurrence: GB)
  Receive Date: 20120417
  Receipt Date: 20130418
  Transmission Date: 20140414
  Serious: Yes (Hospitalization, Other)
  Sender: FDA-Public Use
  Company Number: GB-ROCHE-1055879

PATIENT
  Age: 64 Year
  Sex: Female
  Weight: 84 kg

DRUGS (3)
  1. TOCILIZUMAB [Suspect]
     Indication: RHEUMATOID ARTHRITIS
     Dosage: DOSE INTERRUPTED. LAST DOSE PRIOR TO SAE: 03/NOV/2011
     Route: 065
     Dates: start: 20110616, end: 201112
  2. TOCILIZUMAB [Suspect]
     Dosage: LAST DOSE PRIOR TO SAE 26/JUL/2012
     Route: 065
     Dates: start: 20120315
  3. AZATHIOPRINE [Concomitant]
     Route: 065
     Dates: end: 20111231

REACTIONS (7)
  - Bursa disorder [Unknown]
  - Infection [Recovered/Resolved]
  - Pulmonary embolism [Recovered/Resolved]
  - Abdominal pain [Unknown]
  - Musculoskeletal pain [Unknown]
  - Bursitis [Unknown]
  - Bone erosion [Unknown]
